FAERS Safety Report 10847541 (Version 4)
Quarter: 2017Q3

REPORT INFORMATION
  Report Type: Spontaneous
  Country: US (occurrence: US)
  Receive Date: 20150220
  Receipt Date: 20170705
  Transmission Date: 20171127
  Serious: No
  Sender: FDA-Public Use
  Company Number: US-PFIZER INC-2015061822

PATIENT
  Age: 68 Year
  Sex: Male
  Weight: 90.72 kg

DRUGS (6)
  1. XELJANZ [Suspect]
     Active Substance: TOFACITINIB CITRATE
     Dosage: 5MG 2 TAB PER DAY
     Dates: start: 20150115
  2. XELJANZ [Suspect]
     Active Substance: TOFACITINIB CITRATE
     Dosage: 5 MG, 1X/DAY
     Dates: start: 20150105, end: 20150120
  3. METHOTREXATE. [Concomitant]
     Active Substance: METHOTREXATE
     Indication: RHEUMATOID ARTHRITIS
     Dosage: UNK, WEEKLY [7CC, INJECTION, ONCE PER WEEK] [INJECTS IT INTO HIS LEG]
  4. PREDNISONE. [Concomitant]
     Active Substance: PREDNISONE
     Indication: RHEUMATOID ARTHRITIS
     Dosage: 5 MG, DAILY
  5. XELJANZ [Suspect]
     Active Substance: TOFACITINIB CITRATE
     Indication: RHEUMATOID ARTHRITIS
     Dosage: 10 MG, 1X/DAY (IN THE MORNING)
     Route: 048
     Dates: start: 2013
  6. XELJANZ [Suspect]
     Active Substance: TOFACITINIB CITRATE
     Dosage: 5 MG, 2X/DAY
     Route: 048
     Dates: start: 20150121, end: 20150207

REACTIONS (6)
  - Arthralgia [Recovering/Resolving]
  - Drug dispensing error [Unknown]
  - Pain in extremity [Recovering/Resolving]
  - Insomnia [Unknown]
  - Intentional product misuse [Unknown]
  - Pain [Unknown]

NARRATIVE: CASE EVENT DATE: 201501
